FAERS Safety Report 11088072 (Version 1)
Quarter: 2015Q2

REPORT INFORMATION
  Report Type: Spontaneous
  Country: BR (occurrence: BR)
  Receive Date: 20150504
  Receipt Date: 20150504
  Transmission Date: 20150821
  Serious: Yes (Hospitalization)
  Sender: FDA-Public Use
  Company Number: BR-BIOMARINAP-BR-2015-106210

PATIENT
  Sex: Male
  Weight: 36 kg

DRUGS (1)
  1. NAGLAZYME [Suspect]
     Active Substance: GALSULFASE
     Indication: MUCOPOLYSACCHARIDOSIS VI
     Dosage: 35 MG, QW
     Route: 042
     Dates: start: 20070218

REACTIONS (4)
  - Pyrexia [Unknown]
  - Cough [Unknown]
  - Oxygen saturation abnormal [Unknown]
  - Pneumonia [Unknown]
